FAERS Safety Report 8326967-7 (Version None)
Quarter: 2012Q2

REPORT INFORMATION
  Report Type: 
  Country: None (occurrence: None)
  Receive Date: 20120501
  Receipt Date: 20111013
  Transmission Date: 20120825
  Serious: No
  Sender: FDA-Public Use
  Company Number: US-SANOFI-AVENTIS-2011SA067603

PATIENT
  Age: 63 Year
  Sex: Female

DRUGS (2)
  1. ANTIBIOTICS [Suspect]
     Indication: BRONCHITIS
     Route: 065
  2. APIDRA [Suspect]
     Dosage: CONTINUOUS SUBCUTANEOUS INSULIN INFUSION.
     Route: 058
     Dates: start: 20110901

REACTIONS (3)
  - INJECTION SITE ERYTHEMA [None]
  - MALAISE [None]
  - INJECTION SITE WARMTH [None]
